FAERS Safety Report 5612941-8 (Version None)
Quarter: 2008Q1

REPORT INFORMATION
  Report Type: 
  Country: None (occurrence: None)
  Receive Date: 20080204
  Receipt Date: 20080123
  Transmission Date: 20080703
  Serious: Yes (Other)
  Sender: FDA-Public Use
  Company Number: US-PFIZER INC-2008006988

PATIENT
  Age: 8 Year
  Sex: Male

DRUGS (1)
  1. GEODON [Suspect]
     Dosage: DAILY DOSE:80MG

REACTIONS (3)
  - ENURESIS [None]
  - LETHARGY [None]
  - SOMNOLENCE [None]
